FAERS Safety Report 8698482 (Version 8)
Quarter: 2013Q2

REPORT INFORMATION
  Report Type: Report from Study
  Country: JP (occurrence: JP)
  Receive Date: 20120802
  Receipt Date: 20130611
  Transmission Date: 20140414
  Serious: Yes (Death, Life-Threatening, Hospitalization, Other)
  Sender: FDA-Public Use
  Company Number: JP-PFIZER INC-2012183269

PATIENT
  Age: 72 Year
  Sex: Female
  Weight: 49 kg

DRUGS (19)
  1. XALKORI [Suspect]
     Indication: NON-SMALL CELL LUNG CANCER
     Dosage: 250 MG, 2X/DAY
     Route: 048
     Dates: start: 20120704, end: 20120706
  2. XALKORI [Suspect]
     Dosage: 250 MG, 2X/DAY
     Route: 048
     Dates: start: 20120710, end: 20120723
  3. MUCODYNE [Concomitant]
     Dosage: 500 MG, 3X/DAY
     Route: 048
     Dates: end: 20120723
  4. MAGMITT [Concomitant]
     Dosage: 330 MG, 3X/DAY
     Route: 048
     Dates: end: 20120723
  5. PREDONINE [Concomitant]
     Dosage: 20 MG, 1X/DAY
     Route: 048
     Dates: end: 20120706
  6. PANVITAN [Concomitant]
     Dosage: 1 G, 1X/DAY
     Route: 048
     Dates: end: 20120723
  7. PARIET [Concomitant]
     Dosage: 10 MG, 1X/DAY
     Route: 048
     Dates: end: 20120729
  8. DEPAS [Concomitant]
     Dosage: 0.5 MG, 1X/DAY
     Route: 048
     Dates: end: 20120729
  9. LENDORMIN D [Concomitant]
     Dosage: 0.25 MG, 1X/DAY
     Route: 048
     Dates: end: 20120729
  10. CODEINE PHOSPHATE [Concomitant]
     Dosage: 2 G, 3X/DAY
     Route: 048
     Dates: end: 20120723
  11. LOXONIN [Concomitant]
     Dosage: 100 MG, AS NEEDED
     Route: 062
     Dates: end: 20120804
  12. TRAMAL [Concomitant]
     Dosage: 25 MG, 4X/DAY
     Route: 048
     Dates: start: 20120708, end: 20120712
  13. DUROTEP MT [Concomitant]
     Dosage: 2.1 MG (EVERY 3 DAYS)
     Route: 062
     Dates: start: 20120713, end: 20120728
  14. NORMAL SALINE [Concomitant]
     Dosage: 100 ML, 3X/DAY
     Route: 042
     Dates: start: 20120707, end: 20120721
  15. STRONG NEO-MINOPHAGEN C [Concomitant]
     Dosage: 4 MG, 1X/DAY
     Route: 042
     Dates: start: 20120712, end: 20120721
  16. VOLTAREN [Concomitant]
     Dosage: 25 MG, AS NEEDED
     Route: 054
     Dates: end: 20120804
  17. LOXOPROFEN [Concomitant]
     Dosage: 60 MG, AS NEEDED
     Route: 048
     Dates: end: 20120804
  18. SODIUM PICOSULFATE [Concomitant]
     Dosage: 1 ML, AS NEEDED
     Route: 048
     Dates: end: 20120804
  19. MYSLEE [Concomitant]
     Dosage: 5 MG, AS NEEDED
     Route: 048
     Dates: end: 20120804

REACTIONS (6)
  - Interstitial lung disease [Not Recovered/Not Resolved]
  - Vomiting [Recovered/Resolved]
  - Pneumonia aspiration [Recovering/Resolving]
  - Hepatic function abnormal [Recovering/Resolving]
  - Disease progression [Fatal]
  - Non-small cell lung cancer [Fatal]
